FAERS Safety Report 11151159 (Version 1)
Quarter: 2015Q2

REPORT INFORMATION
  Report Type: Spontaneous
  Country: RU (occurrence: None)
  Receive Date: 20150528
  Receipt Date: 20150528
  Transmission Date: 20150821
  Serious: Yes (Hospitalization)
  Sender: FDA-Public Use
  Company Number: RU2015GSK053981

PATIENT
  Sex: Female

DRUGS (8)
  1. KALETRA [Suspect]
     Active Substance: LOPINAVIR\RITONAVIR
     Indication: PROPHYLAXIS
     Dates: start: 20150319, end: 20150421
  2. LAMIVUDINE. [Suspect]
     Active Substance: LAMIVUDINE
     Indication: PROPHYLAXIS
     Dates: start: 20150319
  3. ZIDOVUDINE. [Suspect]
     Active Substance: ZIDOVUDINE
     Indication: HUMAN IMMUNODEFICIENCY VIRUS TRANSMISSION
     Dosage: 300 UNK, UNK
     Dates: start: 20150319
  4. LAMIVUDINE. [Suspect]
     Active Substance: LAMIVUDINE
     Indication: HUMAN IMMUNODEFICIENCY VIRUS TRANSMISSION
     Dates: start: 20150319
  5. INVIRASE [Suspect]
     Active Substance: SAQUINAVIR MESYLATE
     Indication: HUMAN IMMUNODEFICIENCY VIRUS TRANSMISSION
     Dates: start: 20150421
  6. ZIDOVUDINE. [Suspect]
     Active Substance: ZIDOVUDINE
     Indication: PROPHYLAXIS
     Dosage: 300 UNK, UNK
     Dates: start: 20150319
  7. KALETRA [Suspect]
     Active Substance: LOPINAVIR\RITONAVIR
     Indication: HUMAN IMMUNODEFICIENCY VIRUS TRANSMISSION
     Dates: start: 20150319, end: 20150421
  8. INVIRASE [Suspect]
     Active Substance: SAQUINAVIR MESYLATE
     Indication: PROPHYLAXIS
     Dates: start: 20150421

REACTIONS (9)
  - Alanine aminotransferase increased [None]
  - Chromaturia [None]
  - Dysgeusia [None]
  - Pruritus [None]
  - Palpitations [None]
  - Hyperhidrosis [None]
  - Abdominal discomfort [None]
  - Hot flush [None]
  - Exposure during pregnancy [None]

NARRATIVE: CASE EVENT DATE: 201503
